FAERS Safety Report 19410302 (Version 1)
Quarter: 2021Q2

REPORT INFORMATION
  Report Type: Spontaneous
  Country: US (occurrence: US)
  Receive Date: 20210611
  Receipt Date: 20210611
  Transmission Date: 20210717
  Serious: Yes (Hospitalization)
  Sender: FDA-Public Use
  Company Number: None

PATIENT
  Age: 63 Year
  Sex: Female

DRUGS (14)
  1. LEXAPRO [Concomitant]
     Active Substance: ESCITALOPRAM OXALATE
  2. NORCO [Concomitant]
     Active Substance: ACETAMINOPHEN\HYDROCODONE BITARTRATE
  3. CLONAZEPAM. [Concomitant]
     Active Substance: CLONAZEPAM
  4. AMOXICILLIN. [Concomitant]
     Active Substance: AMOXICILLIN
  5. EMEND [Concomitant]
     Active Substance: APREPITANT
  6. SIMVASTATIN. [Concomitant]
     Active Substance: SIMVASTATIN
  7. DONEPEZIL. [Concomitant]
     Active Substance: DONEPEZIL
  8. CITALOPRAM [Concomitant]
     Active Substance: CITALOPRAM HYDROBROMIDE
  9. PHENAZOPYRID [Concomitant]
  10. DOCQLACE [Concomitant]
     Active Substance: DOCUSATE SODIUM
  11. GABAPENTIN. [Concomitant]
     Active Substance: GABAPENTIN
  12. REBIF [Suspect]
     Active Substance: INTERFERON BETA-1A
     Indication: MULTIPLE SCLEROSIS
     Dosage: ?          OTHER FREQUENCY:3X PER WEEK;?
     Route: 058
     Dates: start: 20201020
  13. WARFARIN [Concomitant]
     Active Substance: WARFARIN
  14. SYNTHROID [Concomitant]
     Active Substance: LEVOTHYROXINE SODIUM

REACTIONS (2)
  - Fall [None]
  - Urinary tract infection [None]

NARRATIVE: CASE EVENT DATE: 20210531
